FAERS Safety Report 13961134 (Version 1)
Quarter: 2017Q3

REPORT INFORMATION
  Report Type: Spontaneous
  Country: DE (occurrence: DE)
  Receive Date: 20170912
  Receipt Date: 20170912
  Transmission Date: 20171128
  Serious: Yes (Other)
  Sender: FDA-Public Use
  Company Number: DE-AMGEN-DEUSP2017136045

PATIENT
  Sex: Female

DRUGS (1)
  1. PROLIA [Suspect]
     Active Substance: DENOSUMAB
     Indication: PRODUCT USED FOR UNKNOWN INDICATION
     Dosage: UNK
     Route: 065
     Dates: start: 201010, end: 201605

REACTIONS (4)
  - Monoplegia [Unknown]
  - Heart rate increased [Unknown]
  - Spinal compression fracture [Unknown]
  - Fracture pain [Unknown]

NARRATIVE: CASE EVENT DATE: 201706
